FAERS Safety Report 11843590 (Version 1)
Quarter: 2015Q4

REPORT INFORMATION
  Report Type: Spontaneous
  Country: VN (occurrence: VN)
  Receive Date: 20151217
  Receipt Date: 20151217
  Transmission Date: 20160305
  Serious: Yes (Other)
  Sender: FDA-Public Use
  Company Number: VN-ROCHE-1676632

PATIENT
  Age: 74 Year
  Sex: Male
  Weight: 65 kg

DRUGS (5)
  1. VINCRISTIN [Suspect]
     Active Substance: VINCRISTINE
     Indication: DIFFUSE LARGE B-CELL LYMPHOMA
     Dosage: DAY 1 PER 21 DAY-CYCLE FOR 6 CYCLES
     Route: 042
     Dates: start: 201501, end: 2015
  2. METHYLPREDNISOLON [Suspect]
     Active Substance: METHYLPREDNISOLONE
     Indication: DIFFUSE LARGE B-CELL LYMPHOMA
     Dosage: DAYS 1-5 PER 21 DAY-CYCLE FOR 6 CYCLES
     Route: 042
     Dates: start: 201501, end: 2015
  3. MABTHERA [Suspect]
     Active Substance: RITUXIMAB
     Indication: DIFFUSE LARGE B-CELL LYMPHOMA
     Dosage: DAY 1 PER 21 DAY-CYCLE FOR 8 CYCLES
     Route: 041
     Dates: start: 201501, end: 201507
  4. CYCLOPHOSPHAMIDE. [Suspect]
     Active Substance: CYCLOPHOSPHAMIDE
     Indication: DIFFUSE LARGE B-CELL LYMPHOMA
     Dosage: DAY 1 PER 21 DAY-CYCLE FOR 6 CYCLES
     Route: 042
     Dates: start: 201501, end: 2015
  5. DOXORUBICINE [Suspect]
     Active Substance: DOXORUBICIN
     Indication: DIFFUSE LARGE B-CELL LYMPHOMA
     Dosage: DAY 1 PER 21 DAY-CYCLE FOR 6 CYCLES
     Route: 042
     Dates: start: 201501, end: 2015

REACTIONS (1)
  - Hypopituitarism [Unknown]
